FAERS Safety Report 20726024 (Version 1)
Quarter: 2022Q2

REPORT INFORMATION
  Report Type: Spontaneous
  Country: US (occurrence: US)
  Receive Date: 20220419
  Receipt Date: 20220419
  Transmission Date: 20220720
  Serious: No
  Sender: FDA-Public Use
  Company Number: US-SA-SAC20220414001392

PATIENT
  Sex: Female

DRUGS (9)
  1. AUBAGIO [Suspect]
     Active Substance: TERIFLUNOMIDE
     Indication: Asthenia
     Dosage: 1 TABLET
     Route: 048
  2. KEPPRA [Concomitant]
     Active Substance: LEVETIRACETAM
     Dosage: UNK
  3. NORVASC [Concomitant]
     Active Substance: AMLODIPINE BESYLATE
     Dosage: UNK
  4. ALPRAZOLAM [Concomitant]
     Active Substance: ALPRAZOLAM
     Dosage: 1 MG
  5. HYOSCYAMINE [Concomitant]
     Active Substance: HYOSCYAMINE
     Dosage: 0.125 MG
  6. QUETIAPINE [Concomitant]
     Active Substance: QUETIAPINE
     Dosage: 25 MG
  7. TIZANIDINE [Concomitant]
     Active Substance: TIZANIDINE
     Dosage: 4 MG
  8. VENLAFAXINE [Concomitant]
     Active Substance: VENLAFAXINE HYDROCHLORIDE
     Dosage: 150 MG
  9. TRIAMTERENE AND HYDROCHLOROTHIAZIDE [Concomitant]
     Active Substance: HYDROCHLOROTHIAZIDE\TRIAMTERENE
     Dosage: 37.5-25

REACTIONS (2)
  - Contusion [Not Recovered/Not Resolved]
  - Product use in unapproved indication [Unknown]
